FAERS Safety Report 10553456 (Version 1)
Quarter: 2014Q4

REPORT INFORMATION
  Report Type: Spontaneous
  Country: US (occurrence: None)
  Receive Date: 20141023
  Receipt Date: 20141023
  Transmission Date: 20150529
  Serious: No
  Sender: FDA-Public Use
  Company Number: AP356-01130-SPO-US

PATIENT
  Age: 48 Year
  Sex: Female
  Weight: 110 kg

DRUGS (3)
  1. NORCO (VICODIN) [Concomitant]
  2. BELVIQ [Suspect]
     Active Substance: LORCASERIN HYDROCHLORIDE
     Indication: WEIGHT DECREASED
     Dosage: 20 MG, 2 IN 1 D, ORAL
     Route: 048
     Dates: start: 20140725
  3. CYMBALTA [Concomitant]
     Active Substance: DULOXETINE HYDROCHLORIDE

REACTIONS (3)
  - Faeces soft [None]
  - Drug ineffective [None]
  - Abdominal pain upper [None]

NARRATIVE: CASE EVENT DATE: 20140725
